FAERS Safety Report 16883651 (Version 1)
Quarter: 2019Q4

REPORT INFORMATION
  Report Type: Spontaneous
  Country: US (occurrence: US)
  Receive Date: 20191004
  Receipt Date: 20191004
  Transmission Date: 20200122
  Serious: No
  Sender: FDA-Public Use
  Company Number: US-ASTRAZENECA-2019SF28786

PATIENT
  Age: 725 Month
  Sex: Female
  Weight: 95.3 kg

DRUGS (6)
  1. BRILINTA [Suspect]
     Active Substance: TICAGRELOR
     Indication: STENT PLACEMENT
     Route: 048
     Dates: start: 201703
  2. METFORMIN [Interacting]
     Active Substance: METFORMIN HYDROCHLORIDE
     Route: 065
     Dates: end: 20170317
  3. LANTUS [Concomitant]
     Active Substance: INSULIN GLARGINE
     Indication: TYPE 2 DIABETES MELLITUS
     Route: 058
  4. ASPIRIN. [Concomitant]
     Active Substance: ASPIRIN
     Indication: ADJUVANT THERAPY
     Route: 048
     Dates: start: 201703
  5. JARDIANCE [Suspect]
     Active Substance: EMPAGLIFLOZIN
     Indication: TYPE 2 DIABETES MELLITUS
     Route: 065
     Dates: start: 201703, end: 2017
  6. LANTUS [Concomitant]
     Active Substance: INSULIN GLARGINE
     Indication: TYPE 2 DIABETES MELLITUS
     Route: 058
     Dates: start: 2017

REACTIONS (5)
  - Product use issue [Not Recovered/Not Resolved]
  - Blood glucose increased [Unknown]
  - Glycosylated haemoglobin increased [Not Recovered/Not Resolved]
  - Cystitis [Recovered/Resolved]
  - Drug interaction [Unknown]

NARRATIVE: CASE EVENT DATE: 201703
